FAERS Safety Report 25870771 (Version 1)
Quarter: 2025Q4

REPORT INFORMATION
  Report Type: Spontaneous
  Country: US (occurrence: US)
  Receive Date: 20251001
  Receipt Date: 20251001
  Transmission Date: 20260118
  Serious: No
  Sender: INSUD PHARMA
  Company Number: US-INSUD PHARMA-2509US07761

PATIENT

DRUGS (2)
  1. SLYND [Suspect]
     Active Substance: DROSPIRENONE
     Indication: Product used for unknown indication
     Dosage: UNK
     Route: 048
     Dates: start: 202408, end: 202412
  2. SLYND [Suspect]
     Active Substance: DROSPIRENONE
     Dosage: UNK
     Route: 048
     Dates: end: 20250914

REACTIONS (3)
  - Amenorrhoea [Not Recovered/Not Resolved]
  - Intentional dose omission [Unknown]
  - Maternal exposure during breast feeding [Unknown]

NARRATIVE: CASE EVENT DATE: 20240101
